FAERS Safety Report 26082848 (Version 3)
Quarter: 2025Q4

REPORT INFORMATION
  Report Type: Spontaneous
  Country: US (occurrence: US)
  Receive Date: 20251124
  Receipt Date: 20251226
  Transmission Date: 20260117
  Serious: No
  Sender: ROCHE
  Company Number: US-ROCHE-10000439275

PATIENT
  Age: 64 Year
  Sex: Male

DRUGS (8)
  1. XOLAIR [Suspect]
     Active Substance: OMALIZUMAB
     Indication: Urticaria
     Dosage: AUTOMATIC INJECTION INTO ARM
     Route: 058
     Dates: start: 20250915
  2. XOLAIR [Suspect]
     Active Substance: OMALIZUMAB
     Indication: Chronic spontaneous urticaria
  3. MONTELUKAST [Concomitant]
     Active Substance: MONTELUKAST
     Indication: Urticaria
     Dosage: AT NIGHT
     Route: 048
  4. ESOMEPRAZOLE MAGNESIUM [Concomitant]
     Active Substance: ESOMEPRAZOLE MAGNESIUM
     Indication: Dyspepsia
  5. ESOMEPRAZOLE MAGNESIUM [Concomitant]
     Active Substance: ESOMEPRAZOLE MAGNESIUM
     Indication: Gastrooesophageal reflux disease
  6. PRAVASTATIN [Concomitant]
     Active Substance: PRAVASTATIN
     Route: 048
  7. AMLODIPINE BESYLATE [Concomitant]
     Active Substance: AMLODIPINE BESYLATE
     Route: 048
  8. ALLEGRA [Concomitant]
     Active Substance: FEXOFENADINE HYDROCHLORIDE
     Indication: Product used for unknown indication

REACTIONS (13)
  - Pain [Unknown]
  - Influenza [Unknown]
  - Headache [Unknown]
  - Fatigue [Not Recovered/Not Resolved]
  - Somnolence [Recovered/Resolved]
  - Urticaria [Recovering/Resolving]
  - Sinus congestion [Recovered/Resolved]
  - Dizziness [Recovered/Resolved]
  - Ear disorder [Recovered/Resolved]
  - Drug ineffective [Unknown]
  - Lip swelling [Unknown]
  - Oral herpes [Unknown]
  - Eye swelling [Unknown]
